FAERS Safety Report 11308663 (Version 1)
Quarter: 2015Q3

REPORT INFORMATION
  Report Type: Spontaneous
  Country: GB (occurrence: GB)
  Receive Date: 20150724
  Receipt Date: 20150724
  Transmission Date: 20151125
  Serious: Yes (Hospitalization)
  Sender: FDA-Public Use
  Company Number: GB-TEVA-579972ACC

PATIENT
  Age: 85 Year
  Sex: Male

DRUGS (25)
  1. DOXAZOSIN [Concomitant]
     Active Substance: DOXAZOSIN\DOXAZOSIN MESYLATE
  2. ONDANSETRON [Concomitant]
     Active Substance: ONDANSETRON
  3. TIOTROPIUM [Concomitant]
     Active Substance: TIOTROPIUM
  4. METRONIDAZOLE. [Suspect]
     Active Substance: METRONIDAZOLE
     Indication: CLOSTRIDIUM DIFFICILE INFECTION
     Dosage: 1200 MILLIGRAM DAILY;
     Route: 048
     Dates: start: 20150501, end: 20150515
  5. BISOPROLOL [Concomitant]
     Active Substance: BISOPROLOL
  6. CLOPIDOGREL [Concomitant]
     Active Substance: CLOPIDOGREL BISULFATE
  7. CYCLIZINE [Concomitant]
     Active Substance: CYCLIZINE
  8. DARBEPOETIN ALFA [Concomitant]
     Active Substance: DARBEPOETIN ALFA
  9. MORPHINE [Concomitant]
     Active Substance: MORPHINE
  10. FUROSEMIDE. [Concomitant]
     Active Substance: FUROSEMIDE
  11. PARACETAMOL [Concomitant]
     Active Substance: ACETAMINOPHEN
  12. ERGOCALCIFEROL. [Concomitant]
     Active Substance: ERGOCALCIFEROL
  13. RAMIPRIL. [Concomitant]
     Active Substance: RAMIPRIL
  14. TAMSULOSIN [Concomitant]
     Active Substance: TAMSULOSIN
  15. GENTAMICIN. [Suspect]
     Active Substance: GENTAMICIN
     Indication: ORTHOPAEDIC PROCEDURE
     Dosage: 160MG IMMEDIATELY
     Route: 042
     Dates: start: 20150613, end: 20150613
  16. TEICOPLANIN [Suspect]
     Active Substance: TEICOPLANIN
     Indication: ORTHOPAEDIC PROCEDURE
     Dosage: 400MG IMMEDIATELY
     Route: 042
     Dates: start: 20150613, end: 20150613
  17. SIMVASTATIN. [Concomitant]
     Active Substance: SIMVASTATIN
  18. AMLODIPINE [Concomitant]
     Active Substance: AMLODIPINE BESYLATE
  19. OMEPRAZOLE. [Concomitant]
     Active Substance: OMEPRAZOLE
  20. TINZAPARIN [Concomitant]
     Active Substance: TINZAPARIN
  21. DOXYCYCLINE. [Suspect]
     Active Substance: DOXYCYCLINE
     Indication: INFECTIVE EXACERBATION OF CHRONIC OBSTRUCTIVE AIRWAYS DISEASE
     Dosage: 200MG IMMEDIATELY THEN 100MG DAILY
     Route: 048
     Dates: start: 20150618, end: 20150624
  22. LANSOPRAZOLE. [Concomitant]
     Active Substance: LANSOPRAZOLE
  23. QUINIDINE SULPHATE [Concomitant]
  24. SALBUTAMOL [Concomitant]
     Active Substance: ALBUTEROL
  25. SERETIDE [Concomitant]
     Active Substance: FLUTICASONE FUROATE\SALMETEROL XINAFOATE

REACTIONS (2)
  - Clostridium difficile infection [Recovering/Resolving]
  - Hip fracture [Unknown]

NARRATIVE: CASE EVENT DATE: 20150630
